FAERS Safety Report 24296764 (Version 4)
Quarter: 2024Q4

REPORT INFORMATION
  Report Type: Report from Study
  Country: CA (occurrence: CA)
  Receive Date: 20240909
  Receipt Date: 20241225
  Transmission Date: 20250115
  Serious: Yes (Hospitalization, Other)
  Sender: UCB
  Company Number: CA-UCBSA-2024044229

PATIENT
  Sex: Male

DRUGS (2)
  1. BIMEKIZUMAB [Suspect]
     Active Substance: BIMEKIZUMAB
     Indication: Psoriasis
     Dosage: 320 MILLIGRAM, EV 4 WEEKS
     Route: 058
     Dates: start: 20240606
  2. ELIQUIS [Concomitant]
     Active Substance: APIXABAN
     Indication: Product used for unknown indication
     Dosage: UNK

REACTIONS (6)
  - Concussion [Unknown]
  - Haemorrhage intracranial [Not Recovered/Not Resolved]
  - Fall [Recovering/Resolving]
  - Gait disturbance [Recovering/Resolving]
  - Thrombectomy [Not Recovered/Not Resolved]
  - Cranial operation [Recovering/Resolving]

NARRATIVE: CASE EVENT DATE: 20240101
